FAERS Safety Report 6151780-9 (Version None)
Quarter: 2009Q2

REPORT INFORMATION
  Report Type: 
  Country: None (occurrence: None)
  Receive Date: 20090410
  Receipt Date: 20090402
  Transmission Date: 20091009
  Serious: Yes (Other)
  Sender: FDA-Public Use
  Company Number: US-ELI_LILLY_AND_COMPANY-US200904000546

PATIENT
  Age: 37 Year
  Sex: Female

DRUGS (1)
  1. XIGRIS [Suspect]
     Dates: start: 20090301

REACTIONS (1)
  - DISSEMINATED INTRAVASCULAR COAGULATION [None]
